FAERS Safety Report 13194909 (Version 7)
Quarter: 2017Q4

REPORT INFORMATION
  Report Type: Report from Study
  Country: None (occurrence: AR)
  Receive Date: 20170207
  Receipt Date: 20171124
  Transmission Date: 20180320
  Serious: Yes (Disabling, Other)
  Sender: FDA-Public Use
  Company Number: AR-ABBVIE-17K-007-1866451-00

PATIENT
  Age: 69 Year
  Sex: Female
  Weight: 87 kg

DRUGS (3)
  1. NAPRUX [Concomitant]
     Active Substance: NAPROXEN
     Indication: PRODUCT USED FOR UNKNOWN INDICATION
     Route: 048
  2. HUMIRA [Suspect]
     Active Substance: ADALIMUMAB
     Route: 058
     Dates: start: 2017, end: 2017
  3. HUMIRA [Suspect]
     Active Substance: ADALIMUMAB
     Indication: PSORIATIC ARTHROPATHY
     Route: 058
     Dates: start: 20161028, end: 2017

REACTIONS (12)
  - Postoperative wound infection [Recovered/Resolved]
  - Injection site urticaria [Recovered/Resolved]
  - Injection site urticaria [Recovered/Resolved]
  - Joint dislocation [Recovered/Resolved]
  - Sciatica [Recovered/Resolved]
  - Injection site urticaria [Recovered/Resolved]
  - Procedural complication [Unknown]
  - Procedural complication [Not Recovered/Not Resolved]
  - Femur fracture [Unknown]
  - Injection site urticaria [Recovered/Resolved]
  - Injection site urticaria [Recovered/Resolved]
  - Pain [Unknown]

NARRATIVE: CASE EVENT DATE: 201701
